FAERS Safety Report 7798120-7 (Version None)
Quarter: 2011Q4

REPORT INFORMATION
  Report Type: 
  Country: None (occurrence: None)
  Receive Date: 20111005
  Receipt Date: 20110928
  Transmission Date: 20120403
  Serious: Yes (Other)
  Sender: FDA-Public Use
  Company Number: JP-B.I. PHARMACEUTICALS,INC./RIDGEFIELD-2011-BP-23136NB

PATIENT
  Age: 79 Year
  Sex: Male
  Weight: 55.2 kg

DRUGS (5)
  1. ZANTAC [Concomitant]
     Indication: GASTROINTESTINAL DISORDER
     Dosage: 300 MG
     Route: 048
     Dates: start: 19980501
  2. DEPAS [Concomitant]
     Indication: SLEEP DISORDER
     Dosage: 1 MG
     Route: 048
     Dates: start: 20050201
  3. PRADAXA [Suspect]
     Indication: CEREBROVASCULAR ACCIDENT PROPHYLAXIS
     Dosage: 220 MCG
     Route: 048
     Dates: start: 20110804, end: 20110912
  4. PAXIL [Concomitant]
     Indication: DEPRESSION
     Dosage: 20 MG
     Route: 048
     Dates: start: 20081001
  5. ALLOPURINOL [Concomitant]
     Indication: HYPERURICAEMIA
     Dosage: 100 MG
     Route: 048
     Dates: start: 19991201

REACTIONS (2)
  - DRUG INEFFECTIVE [None]
  - TRANSIENT ISCHAEMIC ATTACK [None]
